FAERS Safety Report 23529593 (Version 1)
Quarter: 2024Q1

REPORT INFORMATION
  Report Type: Spontaneous
  Country: JP (occurrence: JP)
  Receive Date: 20240216
  Receipt Date: 20240216
  Transmission Date: 20240410
  Serious: Yes (Other)
  Sender: FDA-Public Use
  Company Number: JP-CHEPLA-2024001375

PATIENT
  Age: 67 Year
  Sex: Male

DRUGS (3)
  1. GANCICLOVIR [Suspect]
     Active Substance: GANCICLOVIR
     Dosage: ROA: IV DRIP.
     Route: 042
     Dates: start: 20231223, end: 20231226
  2. GANCICLOVIR [Suspect]
     Active Substance: GANCICLOVIR
     Dosage: ROA: IV DRIP.
     Route: 042
     Dates: start: 20240117, end: 20240124
  3. FOSCAVIR [Concomitant]
     Active Substance: FOSCARNET SODIUM
     Dates: start: 20240125

REACTIONS (1)
  - Liver disorder [Recovered/Resolved]

NARRATIVE: CASE EVENT DATE: 20240101
